FAERS Safety Report 17071604 (Version 1)
Quarter: 2019Q4

REPORT INFORMATION
  Report Type: Spontaneous
  Country: US (occurrence: US)
  Receive Date: 20191125
  Receipt Date: 20191125
  Transmission Date: 20200122
  Serious: Yes (Other)
  Sender: FDA-Public Use
  Company Number: US-MYLANLABS-2019M1113491

PATIENT
  Age: 39 Year
  Sex: Male

DRUGS (2)
  1. EPINEPHRINE. [Suspect]
     Active Substance: EPINEPHRINE
     Indication: NERVE BLOCK
     Dosage: EPINEPHRINE 1:200,000 WITH 0.5% BUPIVACAINE (TOTAL: 3ML)
     Route: 065
  2. BUPIVACAINE. [Suspect]
     Active Substance: BUPIVACAINE
     Indication: NERVE BLOCK
     Dosage: WITH 1:200,000 EPINEPHRINE (TOTAL 3ML)
     Route: 065

REACTIONS (3)
  - Blood pressure increased [Recovered/Resolved]
  - Local anaesthetic systemic toxicity [Recovered/Resolved]
  - Heart rate increased [Recovered/Resolved]
